FAERS Safety Report 10871875 (Version 6)
Quarter: 2015Q4

REPORT INFORMATION
  Report Type: Spontaneous
  Country: FR (occurrence: FR)
  Receive Date: 20150226
  Receipt Date: 20151113
  Transmission Date: 20160304
  Serious: Yes (Other)
  Sender: FDA-Public Use
  Company Number: FR-ALLERGAN-1503087US

PATIENT
  Age: 76 Year
  Sex: Male
  Weight: 66 kg

DRUGS (13)
  1. BOTOX [Suspect]
     Active Substance: ONABOTULINUMTOXINA
     Dosage: UNK, SINGLE
     Route: 030
     Dates: start: 20150112, end: 20150112
  2. AMLODIPINE [Concomitant]
     Active Substance: AMLODIPINE BESYLATE
  3. BOTOX [Suspect]
     Active Substance: ONABOTULINUMTOXINA
     Indication: HEMIPLEGIA
     Dosage: 50 UNITS, SINGLE
     Route: 030
     Dates: start: 20150112, end: 20150112
  4. BOTOX [Suspect]
     Active Substance: ONABOTULINUMTOXINA
     Dosage: 50 UNITS, UNK
     Route: 030
     Dates: start: 20150112, end: 20150112
  5. IRBESARTAN. [Concomitant]
     Active Substance: IRBESARTAN
  6. BACLOFEN. [Concomitant]
     Active Substance: BACLOFEN
  7. PRAVASTATIN [Concomitant]
     Active Substance: PRAVASTATIN\PRAVASTATIN SODIUM
  8. LAMICTAL [Concomitant]
     Active Substance: LAMOTRIGINE
  9. BOTOX [Suspect]
     Active Substance: ONABOTULINUMTOXINA
     Dosage: 50 UNITS, UNK
     Route: 030
     Dates: start: 20150112, end: 20150112
  10. KARDEGIC [Concomitant]
     Active Substance: ASPIRIN LYSINE
  11. BOTOX [Suspect]
     Active Substance: ONABOTULINUMTOXINA
     Dosage: 200 UNITS, UNK
     Route: 030
     Dates: start: 20150112, end: 20150112
  12. BOTOX [Suspect]
     Active Substance: ONABOTULINUMTOXINA
     Dosage: UNK, SINGLE
     Route: 030
     Dates: start: 20150112, end: 20150112
  13. SERESTA [Concomitant]
     Active Substance: OXAZEPAM

REACTIONS (3)
  - Dysstasia [Recovered/Resolved]
  - Fatigue [Recovered/Resolved]
  - Asthenia [Recovered/Resolved]

NARRATIVE: CASE EVENT DATE: 20150113
